FAERS Safety Report 8777859 (Version 2)
Quarter: 2012Q4

REPORT INFORMATION
  Report Type: 
  Country: JP (occurrence: JP)
  Receive Date: 20120912
  Receipt Date: 20121016
  Transmission Date: 20130627
  Serious: Yes (Death)
  Sender: FDA-Public Use
  Company Number: PHHY2012JP078481

PATIENT
  Age: 82 Year
  Sex: Female

DRUGS (2)
  1. EXELON PATCH [Suspect]
     Indication: DEMENTIA ALZHEIMER^S TYPE
     Dosage: 4.5 mg, Daily
     Route: 062
     Dates: start: 20111122, end: 20111219
  2. EXELON PATCH [Suspect]
     Dosage: 9 mg, Daily
     Route: 062
     Dates: start: 20111220

REACTIONS (1)
  - Marasmus [Fatal]
